FAERS Safety Report 5859237-7 (Version None)
Quarter: 2008Q3

REPORT INFORMATION
  Report Type: 
  Country: None (occurrence: None)
  Receive Date: 20080826
  Receipt Date: 20080826
  Transmission Date: 20090109
  Serious: Yes (Other)
  Sender: FDA-Public Use
  Company Number: None

PATIENT
  Sex: Female
  Weight: 57.1532 kg

DRUGS (2)
  1. CYMBALTA [Suspect]
     Indication: ANXIETY
     Dosage: 60 MGS DAILY PO
     Route: 048
     Dates: start: 20060713, end: 20080715
  2. CYMBALTA [Suspect]
     Indication: DEPRESSION
     Dosage: 60 MGS DAILY PO
     Route: 048
     Dates: start: 20060713, end: 20080715

REACTIONS (6)
  - DIZZINESS [None]
  - DYSPHORIA [None]
  - FAMILY STRESS [None]
  - INJURY [None]
  - PAIN [None]
  - PARAESTHESIA [None]
